FAERS Safety Report 22105795 (Version 2)
Quarter: 2023Q1

REPORT INFORMATION
  Report Type: Spontaneous
  Country: RU (occurrence: RU)
  Receive Date: 20230317
  Receipt Date: 20230324
  Transmission Date: 20230417
  Serious: Yes (Other)
  Sender: FDA-Public Use
  Company Number: RU-MLMSERVICE-20230307-4136930-1

PATIENT
  Age: 65 Year
  Sex: Male

DRUGS (2)
  1. CAPECITABINE [Suspect]
     Active Substance: CAPECITABINE
     Indication: Rectal cancer
     Dosage: UNK UNK, QCY,EIGHT CHEMOTHERAPY CYCLES
     Route: 033
  2. OXALIPLATIN [Suspect]
     Active Substance: OXALIPLATIN
     Indication: Rectal cancer
     Dosage: UNK, QCY,EIGHT CHEMOTHERAPY CYCLES
     Route: 033

REACTIONS (8)
  - Mycetoma mycotic [Recovered/Resolved]
  - Hyperkeratosis [Recovered/Resolved]
  - Trichophytosis [Recovered/Resolved]
  - Onychomycosis [Recovered/Resolved]
  - Nail disorder [Recovered/Resolved]
  - Nail discolouration [Recovered/Resolved]
  - Erythema [Recovered/Resolved]
  - Purulent discharge [Recovered/Resolved]
